FAERS Safety Report 17622644 (Version 1)
Quarter: 2020Q2

REPORT INFORMATION
  Report Type: Spontaneous
  Country: US (occurrence: US)
  Receive Date: 20200402
  Receipt Date: 20200402
  Transmission Date: 20200713
  Serious: Yes (Hospitalization)
  Sender: FDA-Public Use
  Company Number: None

PATIENT
  Age: 42 Year
  Sex: Female
  Weight: 60.9 kg

DRUGS (13)
  1. ZANTAC [Concomitant]
     Active Substance: RANITIDINE HYDROCHLORIDE
  2. ZYPREXA [Concomitant]
     Active Substance: OLANZAPINE
  3. CISPLATIN. [Suspect]
     Active Substance: CISPLATIN
     Dates: start: 20200206, end: 20200227
  4. FAMOTIDINE. [Concomitant]
     Active Substance: FAMOTIDINE
  5. PLAQUERIL [Concomitant]
  6. ZOFRAN [Concomitant]
     Active Substance: ONDANSETRON HYDROCHLORIDE
  7. CALVERIDOL [Concomitant]
  8. PHENERGAN [Concomitant]
     Active Substance: PROMETHAZINE HYDROCHLORIDE
  9. BENADRYL [Concomitant]
     Active Substance: DIPHENHYDRAMINE HYDROCHLORIDE
  10. FOSAPREPITAN [Concomitant]
  11. DEEADRON [Concomitant]
  12. DIFLUCAN [Concomitant]
     Active Substance: FLUCONAZOLE
  13. PEPCID [Concomitant]
     Active Substance: FAMOTIDINE

REACTIONS (9)
  - Candida infection [None]
  - Mucosal inflammation [None]
  - Tinnitus [None]
  - Paraesthesia [None]
  - Dehydration [None]
  - Nausea [None]
  - Hypoaesthesia [None]
  - Vomiting [None]
  - Dysphagia [None]

NARRATIVE: CASE EVENT DATE: 20200228
